FAERS Safety Report 24031180 (Version 1)
Quarter: 2024Q2

REPORT INFORMATION
  Report Type: Report from Study
  Country: AR (occurrence: AR)
  Receive Date: 20240629
  Receipt Date: 20240629
  Transmission Date: 20240717
  Serious: Yes (Hospitalization)
  Sender: FDA-Public Use
  Company Number: AR-ABBVIE-5819528

PATIENT
  Age: 73 Year
  Sex: Female

DRUGS (1)
  1. RINVOQ [Suspect]
     Active Substance: UPADACITINIB
     Indication: Rheumatoid arthritis
     Dosage: 15 MILLIGRAM?FORM STRENGTH: 15 MILLIGRAM
     Route: 048
     Dates: start: 20180201, end: 20240626

REACTIONS (1)
  - Infected varicose vein [Not Recovered/Not Resolved]

NARRATIVE: CASE EVENT DATE: 20240623
